FAERS Safety Report 13838853 (Version 1)
Quarter: 2017Q3

REPORT INFORMATION
  Report Type: Spontaneous
  Country: US (occurrence: US)
  Receive Date: 20170804
  Receipt Date: 20170804
  Transmission Date: 20171127
  Serious: Yes (Other)
  Sender: FDA-Public Use
  Company Number: None

PATIENT
  Age: 24 Year
  Sex: Female
  Weight: 80.55 kg

DRUGS (1)
  1. CLINDAMYCIN. [Suspect]
     Active Substance: CLINDAMYCIN
     Dosage: 1 AN - AS NECESSARY TWICE A DAY ORAL
     Route: 048

REACTIONS (1)
  - Accidental exposure to product packaging [None]

NARRATIVE: CASE EVENT DATE: 20170803
